FAERS Safety Report 7348234-0 (Version None)
Quarter: 2011Q1

REPORT INFORMATION
  Report Type: 
  Country: None (occurrence: None)
  Receive Date: 20110311
  Receipt Date: 20110214
  Transmission Date: 20110831
  Serious: No
  Sender: FDA-Public Use
  Company Number: US-B.I. PHARMACEUTICALS,INC./RIDGEFIELD-2010-BP-15168BP

PATIENT
  Age: 82 Year
  Sex: Male

DRUGS (12)
  1. POTASSIUM CHLORIDE [Concomitant]
  2. LIPITOR [Concomitant]
  3. FUROSEMIDE [Concomitant]
     Indication: OEDEMA
     Route: 048
  4. CARVEDILOL [Concomitant]
  5. ISOSORBID MONONITRATE [Concomitant]
  6. ATORVASTATIN [Concomitant]
  7. SPIRIVA [Suspect]
     Indication: CHRONIC OBSTRUCTIVE PULMONARY DISEASE
     Dosage: 18 MCG
     Route: 055
     Dates: start: 20090101
  8. METFORMIN [Concomitant]
  9. GLYBURIDE [Concomitant]
  10. LEVEMIR [Concomitant]
     Indication: DIABETES MELLITUS
  11. CAPTOPRIL [Concomitant]
  12. ASPIRIN [Concomitant]

REACTIONS (3)
  - DYSURIA [None]
  - URINE FLOW DECREASED [None]
  - SKIN DEPIGMENTATION [None]
